FAERS Safety Report 11291068 (Version 1)
Quarter: 2015Q3

REPORT INFORMATION
  Report Type: Spontaneous
  Country: US (occurrence: None)
  Receive Date: 20150720
  Receipt Date: 20150720
  Transmission Date: 20151125
  Serious: No
  Sender: FDA-Public Use
  Company Number: 2015-00056

PATIENT
  Age: 35 Year
  Sex: Female
  Weight: 113.4 kg

DRUGS (2)
  1. PROZAC [Concomitant]
     Active Substance: FLUOXETINE HYDROCHLORIDE
  2. ZICAM EXTREME CONGESTION RELIEF [Suspect]
     Active Substance: OXYMETAZOLINE HYDROCHLORIDE
     Indication: NASOPHARYNGITIS
     Dosage: ONE SPRAY PER NOSTRIL
     Dates: start: 201503

REACTIONS (3)
  - Anosmia [None]
  - Nasal discomfort [None]
  - Instillation site exfoliation [None]

NARRATIVE: CASE EVENT DATE: 201503
